FAERS Safety Report 4959549-5 (Version None)
Quarter: 2006Q1

REPORT INFORMATION
  Report Type: 
  Country: None (occurrence: None)
  Receive Date: 20060331
  Receipt Date: 20060322
  Transmission Date: 20060701
  Serious: Yes (Hospitalization)
  Sender: FDA-Public Use
  Company Number: JP-JPN-A200601001

PATIENT
  Age: 67 Year
  Sex: Female

DRUGS (3)
  1. PAXIL [Suspect]
     Dosage: 10U PER DAY
     Route: 048
  2. LITHIUM CARBONATE [Suspect]
     Route: 048
  3. GOODMIN [Concomitant]
     Route: 048

REACTIONS (2)
  - DEPRESSED LEVEL OF CONSCIOUSNESS [None]
  - INTENTIONAL OVERDOSE [None]
